FAERS Safety Report 7780203-9 (Version None)
Quarter: 2011Q3

REPORT INFORMATION
  Report Type: 
  Country: None (occurrence: None)
  Receive Date: 20110927
  Receipt Date: 20110927
  Transmission Date: 20111222
  Serious: Yes (Hospitalization)
  Sender: FDA-Public Use
  Company Number: None

PATIENT
  Age: 61 Year
  Sex: Male

DRUGS (8)
  1. MULTIVITAMIN [Concomitant]
  2. TERAZOSIN HCL [Suspect]
     Indication: HYPERTENSION
     Dosage: 10 MG
     Route: 048
  3. TERAZOSIN HCL [Suspect]
     Indication: BENIGN PROSTATIC HYPERPLASIA
     Dosage: 10 MG
     Route: 048
  4. VIT B12 [Concomitant]
  5. ZYLOPRIM [Concomitant]
  6. PRINIVIL [Concomitant]
  7. NORVASC [Concomitant]
  8. ASPIRIN [Concomitant]

REACTIONS (1)
  - PRESYNCOPE [None]
